FAERS Safety Report 14615883 (Version 2)
Quarter: 2018Q1

REPORT INFORMATION
  Report Type: Report from Study
  Country: DE (occurrence: DE)
  Receive Date: 20180309
  Receipt Date: 20180327
  Transmission Date: 20180509
  Serious: Yes (Death, Other)
  Sender: FDA-Public Use
  Company Number: DE-BRISTOL-MYERS SQUIBB COMPANY-BMS-2018-021627

PATIENT
  Age: 64 Year
  Sex: Male

DRUGS (2)
  1. NIVOLUMAB [Suspect]
     Active Substance: NIVOLUMAB
     Indication: MALIGNANT MELANOMA
     Dosage: 105 MG, Q2WK
     Route: 042
     Dates: start: 20170731, end: 20171006
  2. NIVOLUMAB [Suspect]
     Active Substance: NIVOLUMAB
     Indication: PRODUCT USED FOR UNKNOWN INDICATION
     Dosage: 303 MG, Q2WK
     Route: 042
     Dates: start: 20171027, end: 20180302

REACTIONS (2)
  - Pulmonary haemorrhage [Fatal]
  - Asphyxia [Fatal]

NARRATIVE: CASE EVENT DATE: 20180304
